FAERS Safety Report 5319765-X (Version None)
Quarter: 2007Q1

REPORT INFORMATION
  Report Type: 
  Country: None (occurrence: None)
  Receive Date: 20070205
  Receipt Date: 20060124
  Transmission Date: 20070707
  Serious: Yes (Other)
  Sender: FDA-Public Use
  Company Number: PHEH2006US01318

PATIENT
  Sex: Female

DRUGS (2)
  1. RITALIN [Suspect]
  2. CONCERTA [Suspect]

REACTIONS (1)
  - BLOOD PRESSURE INCREASED [None]
